FAERS Safety Report 6307270-3 (Version None)
Quarter: 2009Q3

REPORT INFORMATION
  Report Type: 
  Country: None (occurrence: None)
  Receive Date: 20090813
  Receipt Date: 20070914
  Transmission Date: 20100115
  Serious: Yes (Hospitalization, Other)
  Sender: FDA-Public Use
  Company Number: US-ASTRAZENECA-2006UW08900

PATIENT
  Age: 517 Month
  Sex: Female
  Weight: 70.1 kg

DRUGS (9)
  1. SEROQUEL [Suspect]
     Indication: DEPRESSION
     Dosage: 25-400 MG
     Route: 048
     Dates: start: 20010115
  2. SEROQUEL [Suspect]
     Route: 048
     Dates: start: 20010101
  3. RISPERDAL [Suspect]
     Indication: DEPRESSION
     Dosage: 1-2 MG
     Route: 048
     Dates: start: 20030319
  4. RISPERDAL [Suspect]
     Dates: start: 20030301
  5. ZYPREXA [Concomitant]
     Dates: start: 20020101
  6. SERZONE [Concomitant]
     Dosage: 150-200 MG
     Route: 048
     Dates: start: 20010319
  7. NAPROSYN [Concomitant]
     Dates: start: 20011018
  8. HYDROCHLOROTHIAZIDE [Concomitant]
     Dates: start: 20011018
  9. EFFEXOR XR [Concomitant]
     Dosage: 50-150 MG
     Dates: start: 20010501

REACTIONS (5)
  - DIABETES MELLITUS [None]
  - DIABETIC GASTROPARESIS [None]
  - PANCREATITIS [None]
  - PANCREATITIS ACUTE [None]
  - TYPE 2 DIABETES MELLITUS [None]
